FAERS Safety Report 7451026-5 (Version None)
Quarter: 2011Q2

REPORT INFORMATION
  Report Type: 
  Country: None (occurrence: None)
  Receive Date: 20110502
  Receipt Date: 20110502
  Transmission Date: 20111010
  Serious: Yes (Other)
  Sender: FDA-Public Use
  Company Number: FR-PFIZER INC-2010120685

PATIENT
  Age: 65 Year
  Sex: Female
  Weight: 175 kg

DRUGS (5)
  1. SOLU-MEDROL [Suspect]
     Dosage: 80 MG, 1X/DAY
     Route: 042
     Dates: start: 20100815, end: 20100816
  2. KEPPRA [Concomitant]
     Indication: GLIOBLASTOMA
     Dosage: 100 MG, 1X/DAY
     Route: 048
     Dates: start: 20091006
  3. MEDROL [Suspect]
     Dosage: 80 MG, 1X/DAY
     Route: 048
     Dates: start: 20100810
  4. LYSANXIA [Concomitant]
     Indication: ANXIETY
     Dosage: 5 MG, 1X/DAY
     Route: 048
     Dates: start: 20100423
  5. SUTENT [Suspect]
     Indication: GLIOBLASTOMA
     Dosage: UNK
     Route: 048
     Dates: start: 20100726, end: 20100815

REACTIONS (1)
  - CYTOLYTIC HEPATITIS [None]
